FAERS Safety Report 11942654 (Version 1)
Quarter: 2016Q1

REPORT INFORMATION
  Report Type: Spontaneous
  Country: US (occurrence: US)
  Receive Date: 20160125
  Receipt Date: 20160125
  Transmission Date: 20160526
  Serious: No
  Sender: FDA-Public Use
  Company Number: US-UNITED THERAPEUTICS-UNT-2015-007332

PATIENT
  Sex: Female
  Weight: 79.37 kg

DRUGS (1)
  1. REMODULIN [Suspect]
     Active Substance: TREPROSTINIL
     Indication: PULMONARY HYPERTENSION
     Dosage: 0.049 ?G/KG/MIN, CONTINUING
     Route: 058
     Dates: start: 20150216

REACTIONS (8)
  - Infusion site pruritus [Unknown]
  - Drug dose omission [Unknown]
  - Infusion site oedema [Unknown]
  - Infusion site haemorrhage [Unknown]
  - Infusion site infection [Unknown]
  - Infusion site pain [Unknown]
  - Device dislocation [Unknown]
  - Infusion site pustule [Unknown]

NARRATIVE: CASE EVENT DATE: 2015
